FAERS Safety Report 5156948-6 (Version None)
Quarter: 2006Q4

REPORT INFORMATION
  Report Type: 
  Country: None (occurrence: None)
  Receive Date: 20061124
  Receipt Date: 20061012
  Transmission Date: 20070319
  Serious: Yes (Hospitalization)
  Sender: FDA-Public Use
  Company Number: DE-ROCHE-467223

PATIENT
  Age: 67 Year
  Sex: Female
  Weight: 67 kg

DRUGS (2)
  1. CAPECITABINE [Suspect]
     Indication: BREAST CANCER
     Dosage: DOSE TWICE DAILY FOR FIRST 14 OF 21 DAY CYCLE.
     Route: 048
     Dates: start: 20060929, end: 20061002
  2. DOCETAXEL [Suspect]
     Indication: BREAST CANCER
     Dosage: DOSE GIVEN ON DAY 1 OF 21 DAY CYCLE
     Route: 042
     Dates: start: 20060929

REACTIONS (2)
  - ASTHENIA [None]
  - MUCOSAL INFLAMMATION [None]
